FAERS Safety Report 7727131-2 (Version None)
Quarter: 2011Q3

REPORT INFORMATION
  Report Type: 
  Country: None (occurrence: None)
  Receive Date: 20110902
  Receipt Date: 20110825
  Transmission Date: 20111222
  Serious: Yes (Hospitalization)
  Sender: FDA-Public Use
  Company Number: CA-JNJFOC-20110410205

PATIENT
  Sex: Female
  Weight: 59.4 kg

DRUGS (14)
  1. VITAMIN B COMPLEX CAP [Concomitant]
     Route: 065
  2. IMURAN [Concomitant]
     Route: 065
  3. GLUCOSAMINE [Concomitant]
     Route: 065
  4. VITAMIN B-12 INJECTIONS [Concomitant]
     Route: 065
  5. REMICADE [Suspect]
     Indication: CROHN'S DISEASE
     Route: 042
     Dates: start: 20080505
  6. VITAMIN D [Concomitant]
     Route: 065
  7. VALTREX [Concomitant]
     Dosage: AS NEEDED
     Route: 065
  8. PREVACID [Concomitant]
     Route: 065
  9. CHOLESTYRAMINE [Concomitant]
     Dosage: 1 POUCH PER DAY
     Route: 065
  10. INDAPAMIDE [Concomitant]
     Route: 065
  11. REMICADE [Suspect]
     Dosage: DOSAGE EVERY 6-8 WEEKS
     Route: 042
     Dates: start: 20080516
  12. MULTI-VITAMINS [Concomitant]
     Route: 065
  13. ATACAND [Concomitant]
     Route: 065
  14. CALTRATE + VITAMIN D [Concomitant]
     Route: 065

REACTIONS (1)
  - CHOLELITHIASIS [None]
